FAERS Safety Report 17516727 (Version 1)
Quarter: 2020Q1

REPORT INFORMATION
  Report Type: Spontaneous
  Country: US (occurrence: US)
  Receive Date: 20200306
  Receipt Date: 20200306
  Transmission Date: 20200409
  Serious: No
  Sender: FDA-Public Use
  Company Number: None

PATIENT
  Age: 66 Year
  Sex: Female
  Weight: 66.15 kg

DRUGS (10)
  1. CYANNOCOBALAMINE [Concomitant]
  2. NIFEDINE [Concomitant]
  3. LINZESS [Concomitant]
     Active Substance: LINACLOTIDE
  4. BUPROPION. [Concomitant]
     Active Substance: BUPROPION
  5. VENLAFAINE [Concomitant]
  6. TRAZDONE [Concomitant]
     Active Substance: TRAZODONE HYDROCHLORIDE
  7. ATORVASTINE [Concomitant]
  8. METRONIDAZOLE 500 MG TABLET [Suspect]
     Active Substance: METRONIDAZOLE
     Indication: GASTROINTESTINAL VIRAL INFECTION
     Dosage: ?          QUANTITY:30 TABLET(S);?
     Route: 048
     Dates: start: 20200226, end: 20200227
  9. GABAPENTIN. [Concomitant]
     Active Substance: GABAPENTIN
  10. ALPRAZOLAM. [Concomitant]
     Active Substance: ALPRAZOLAM

REACTIONS (14)
  - Amnesia [None]
  - Vision blurred [None]
  - Irritability [None]
  - Coordination abnormal [None]
  - Agitation [None]
  - Dysarthria [None]
  - Speech disorder [None]
  - Nausea [None]
  - Confusional state [None]
  - Tremor [None]
  - Lethargy [None]
  - Gait disturbance [None]
  - Diarrhoea [None]
  - Infrequent bowel movements [None]

NARRATIVE: CASE EVENT DATE: 20200226
